FAERS Safety Report 6211703-0 (Version None)
Quarter: 2009Q2

REPORT INFORMATION
  Report Type: 
  Country: None (occurrence: None)
  Receive Date: 20090602
  Receipt Date: 20090528
  Transmission Date: 20091009
  Serious: Yes (Life-Threatening, Hospitalization)
  Sender: FDA-Public Use
  Company Number: B0576638A

PATIENT
  Age: 46 Year
  Sex: Female
  Weight: 67.1 kg

DRUGS (5)
  1. COMBIVIR [Suspect]
     Indication: HIV INFECTION
     Dosage: 1TAB TWICE PER DAY
     Route: 048
     Dates: start: 20060719
  2. EFAVIRENZ [Suspect]
     Indication: HIV INFECTION
     Dosage: 600MG PER DAY
     Route: 048
     Dates: start: 20060719
  3. FOLIC ACID + IRON [Concomitant]
     Dates: start: 20090520
  4. PARACETAMOL [Concomitant]
     Dates: start: 20090518
  5. OMEPRAZOLE [Concomitant]
     Dates: start: 20090520

REACTIONS (8)
  - ANAEMIA [None]
  - BLOOD CREATINE PHOSPHOKINASE INCREASED [None]
  - BLOOD CREATININE INCREASED [None]
  - CARBON DIOXIDE INCREASED [None]
  - DYSPEPSIA [None]
  - HYPONATRAEMIA [None]
  - MYOSITIS [None]
  - RENAL FAILURE ACUTE [None]
